FAERS Safety Report 5835457-2 (Version None)
Quarter: 2008Q3

REPORT INFORMATION
  Report Type: 
  Country: None (occurrence: None)
  Receive Date: 20080804
  Receipt Date: 20080721
  Transmission Date: 20090109
  Serious: Yes (Hospitalization, Other)
  Sender: FDA-Public Use
  Company Number: 2008BI019005

PATIENT
  Sex: Female

DRUGS (1)
  1. AVONEX [Suspect]
     Indication: MULTIPLE SCLEROSIS
     Dosage: IM
     Route: 030
     Dates: start: 20060421

REACTIONS (6)
  - BENIGN NEOPLASM [None]
  - CONVULSION [None]
  - HYPOAESTHESIA [None]
  - INFLUENZA [None]
  - INJECTION SITE REACTION [None]
  - MOBILITY DECREASED [None]
